FAERS Safety Report 8268666-6 (Version None)
Quarter: 2012Q2

REPORT INFORMATION
  Report Type: 
  Country: None (occurrence: None)
  Receive Date: 20120409
  Receipt Date: 20120330
  Transmission Date: 20120825
  Serious: Yes (Other)
  Sender: FDA-Public Use
  Company Number: US-ROCHE-783816

PATIENT
  Sex: Male
  Weight: 102.15 kg

DRUGS (2)
  1. ACCUTANE [Suspect]
     Indication: ACNE
     Route: 065
     Dates: start: 19830727, end: 19831103
  2. TERRAMYCIN V CAP [Concomitant]

REACTIONS (8)
  - CROHN'S DISEASE [None]
  - STRESS [None]
  - INFLAMMATORY BOWEL DISEASE [None]
  - INTESTINAL OBSTRUCTION [None]
  - ANAL FISTULA [None]
  - ARTHRITIS [None]
  - DEPRESSION [None]
  - ANAL ABSCESS [None]
